FAERS Safety Report 8344942 (Version 2)
Quarter: 2012Q4

REPORT INFORMATION
  Report Type: 
  Country: US (occurrence: US)
  Receive Date: 20120120
  Receipt Date: 20121015
  Transmission Date: 20130627
  Serious: Yes (Death, Hospitalization)
  Sender: FDA-Public Use
  Company Number: US-RANBAXY-2012US-51937

PATIENT
  Age: 70 Year
  Sex: Male

DRUGS (4)
  1. VALSARTAN [Suspect]
     Indication: PRODUCT USED FOR UNKNOWN INDICATION
     Dosage: UNK
     Route: 065
  2. CARVEDILOL [Suspect]
     Indication: PRODUCT USED FOR UNKNOWN INDICATION
     Dosage: UNK
     Route: 065
  3. SPIRONOLACTONE [Suspect]
     Indication: PRODUCT USED FOR UNKNOWN INDICATION
     Dosage: UNK
     Route: 065
  4. INSULIN [Suspect]
     Indication: PRODUCT USED FOR UNKNOWN INDICATION
     Dosage: unk
     Route: 065

REACTIONS (4)
  - Hyperkalaemia [Recovered/Resolved]
  - Atrioventricular block complete [Recovered/Resolved]
  - Sinus arrest [Recovered/Resolved]
  - Oedema [Unknown]
